FAERS Safety Report 10067333 (Version 1)
Quarter: 2014Q2

REPORT INFORMATION
  Report Type: Spontaneous
  Country: US (occurrence: US)
  Receive Date: 20140409
  Receipt Date: 20140409
  Transmission Date: 20141212
  Serious: No
  Sender: FDA-Public Use
  Company Number: US-DRREDDYS-USA/USA/14/0037120

PATIENT
  Age: 18 Year
  Sex: Female
  Weight: 61.29 kg

DRUGS (2)
  1. AMOXICILLIN W/CLAVULANATE POTASSIUM 875 MG TABLETS [Suspect]
     Indication: SINUSITIS
     Route: 048
     Dates: start: 20140108, end: 20140108
  2. SUDAFED [Concomitant]
     Indication: PRODUCT USED FOR UNKNOWN INDICATION
     Route: 065
     Dates: start: 20140108

REACTIONS (1)
  - Hypersensitivity [Recovered/Resolved]
